FAERS Safety Report 4388997-X (Version None)
Quarter: 2004Q2

REPORT INFORMATION
  Report Type: 
  Country: None (occurrence: None)
  Receive Date: 20040628
  Receipt Date: 20040622
  Transmission Date: 20050107
  Serious: Yes (Death)
  Sender: FDA-Public Use
  Company Number: HQWYE445714JUN04

PATIENT
  Age: 49 Year
  Sex: Female

DRUGS (9)
  1. RAPAMUNE [Suspect]
     Dosage: 2 MG 1X PER 1 DAY
  2. CYCLOSPORINE [Concomitant]
  3. PREDNISOLONE [Concomitant]
  4. RANITIDINE [Concomitant]
  5. ISONIAZID [Concomitant]
  6. SULFAMETHOXAZOLE + TRIMETHOPRIM [Concomitant]
  7. ACYCLOVIR [Concomitant]
  8. PIRIDOXILATE (PIRIDOXILATE) [Concomitant]
  9. CALCIUM POLYSTYRENE SULFONATE (CALCIUM POLYSTYRENE SULFONATE) [Concomitant]

REACTIONS (5)
  - BLOOD CREATINE INCREASED [None]
  - BLOOD POTASSIUM INCREASED [None]
  - BLOOD UREA INCREASED [None]
  - HAEMATOCRIT DECREASED [None]
  - MYOCARDIAL INFARCTION [None]
